FAERS Safety Report 4319735-4 (Version None)
Quarter: 2004Q1

REPORT INFORMATION
  Report Type: 
  Country: None (occurrence: None)
  Receive Date: 20040319
  Receipt Date: 20031024
  Transmission Date: 20041129
  Serious: Yes (Hospitalization)
  Sender: FDA-Public Use
  Company Number: US-GLAXOSMITHKLINE-A0431571A

PATIENT
  Age: 80 Year
  Sex: Female
  Weight: 53.6 kg

DRUGS (12)
  1. PAXIL CR [Suspect]
     Dosage: 25MG PER DAY
     Route: 048
  2. DIGOXIN [Suspect]
     Indication: BRADYCARDIA
     Dosage: .125MG PER DAY
     Route: 048
     Dates: start: 20031001
  3. AMILORIDE HCL AND HYDROCHLOROTHIAZIDE [Suspect]
     Indication: HYPERTENSION
     Dosage: 50MG PER DAY
     Route: 048
  4. LASIX [Concomitant]
     Dosage: 40MG AS REQUIRED
     Route: 048
  5. KCL TAB [Concomitant]
     Dosage: 10MEQ AS REQUIRED
     Route: 048
  6. ALBUTEROL [Concomitant]
     Dosage: 2PUFF AS REQUIRED
     Route: 025
  7. ATROVENT [Concomitant]
     Dosage: 1PUFF AS REQUIRED
     Route: 025
  8. DURAGESIC [Concomitant]
     Indication: PAIN
     Dosage: 50MCG CONTINUOUS
  9. EVISTA [Concomitant]
     Dosage: 6MG PER DAY
     Route: 048
  10. XANAX [Concomitant]
     Indication: ANXIETY DISORDER
     Dosage: 1MG THREE TIMES PER DAY
     Route: 048
  11. ASPIRIN [Concomitant]
     Dosage: 81MG PER DAY
  12. DIGITEK [Concomitant]
     Indication: HEART RATE DECREASED
     Dosage: .125MG PER DAY
     Route: 048

REACTIONS (23)
  - ABASIA [None]
  - ANAEMIA [None]
  - APHASIA [None]
  - ATRIAL FIBRILLATION [None]
  - BLOOD PRESSURE FLUCTUATION [None]
  - BUNDLE BRANCH BLOCK [None]
  - CARDIAC FAILURE CONGESTIVE [None]
  - CONFUSIONAL STATE [None]
  - CONVULSION [None]
  - DISORIENTATION [None]
  - DRUG INTOLERANCE [None]
  - GASTROINTESTINAL HAEMORRHAGE [None]
  - HYPOCALCAEMIA [None]
  - HYPOKALAEMIA [None]
  - HYPONATRAEMIA [None]
  - INAPPROPRIATE ANTIDIURETIC HORMONE SECRETION [None]
  - MYOCARDIAL INFARCTION [None]
  - OEDEMA PERIPHERAL [None]
  - OVERDOSE [None]
  - PAIN IN EXTREMITY [None]
  - SYNCOPE [None]
  - THERAPEUTIC AGENT TOXICITY [None]
  - TREMOR [None]
